FAERS Safety Report 8556672-3 (Version None)
Quarter: 2012Q3

REPORT INFORMATION
  Report Type: 
  Country: None (occurrence: None)
  Receive Date: 20120726
  Receipt Date: 20120726
  Transmission Date: 20120928
  Serious: Yes (Hospitalization, Other)
  Sender: FDA-Public Use
  Company Number: None

PATIENT
  Sex: Female

DRUGS (1)
  1. PREDNISONE [Suspect]
     Indication: HEADACHE
     Dosage: 60MG ONCE A DAY PO
     Route: 048

REACTIONS (1)
  - ALOPECIA [None]
